FAERS Safety Report 10722087 (Version 1)
Quarter: 2015Q1

REPORT INFORMATION
  Report Type: Spontaneous
  Country: CN (occurrence: CN)
  Receive Date: 20150119
  Receipt Date: 20150119
  Transmission Date: 20150721
  Serious: Yes (Life-Threatening)
  Sender: FDA-Public Use
  Company Number: CN-BRACCO-001512

PATIENT
  Age: 53 Year
  Sex: Female
  Weight: 60 kg

DRUGS (1)
  1. MULTIHANCE [Suspect]
     Active Substance: GADOBENATE DIMEGLUMINE
     Indication: NUCLEAR MAGNETIC RESONANCE IMAGING
     Route: 041
     Dates: start: 20140717, end: 20140717

REACTIONS (3)
  - Shock [Recovered/Resolved]
  - Blood pressure decreased [Recovered/Resolved]
  - Coma [Recovered/Resolved]

NARRATIVE: CASE EVENT DATE: 20140717
